FAERS Safety Report 5647282-6 (Version None)
Quarter: 2008Q1

REPORT INFORMATION
  Report Type: 
  Country: None (occurrence: None)
  Receive Date: 20080303
  Receipt Date: 20080225
  Transmission Date: 20080703
  Serious: Yes (Other)
  Sender: FDA-Public Use
  Company Number: US-JNJFOC-20080206112

PATIENT
  Age: 16 Year
  Sex: Male
  Weight: 136.08 kg

DRUGS (2)
  1. INVEGA [Suspect]
     Indication: DRUG THERAPY
     Route: 048
  2. SINGULAIR [Concomitant]
     Indication: HYPERSENSITIVITY

REACTIONS (7)
  - FATIGUE [None]
  - FEELING HOT [None]
  - INCREASED APPETITE [None]
  - PRURITUS [None]
  - THIRST [None]
  - URINE OUTPUT INCREASED [None]
  - WEIGHT INCREASED [None]
